FAERS Safety Report 7665393 (Version 2)
Quarter: 2012Q4

REPORT INFORMATION
  Report Type: 
  Country: JP (occurrence: US)
  Receive Date: 20101112
  Receipt Date: 20121019
  Transmission Date: 20130627
  Serious: Yes (Other)
  Sender: FDA-Public Use
  Company Number: US-JNJFOC-20100806078

PATIENT
  Age: 53 None
  Sex: Male

DRUGS (2)
  1. LEVAQUIN [Suspect]
     Indication: PRODUCT USED FOR UNKNOWN INDICATION
     Route: 048
     Dates: start: 200805, end: 200806
  2. LEVAQUIN [Suspect]
     Indication: OSTEOMYELITIS
     Route: 041

REACTIONS (6)
  - Rotator cuff syndrome [Unknown]
  - Arthropathy [Unknown]
  - Rotator cuff syndrome [Unknown]
  - Tendon disorder [Unknown]
  - Tendon rupture [Unknown]
  - Rotator cuff syndrome [Unknown]
